FAERS Safety Report 9363229 (Version 1)
Quarter: 2013Q2

REPORT INFORMATION
  Report Type: Spontaneous
  Country: US (occurrence: US)
  Receive Date: 20130624
  Receipt Date: 20130624
  Transmission Date: 20140414
  Serious: No
  Sender: FDA-Public Use
  Company Number: US-BIOGENIDEC-2013BI054062

PATIENT
  Age: 16 Year
  Sex: Female

DRUGS (1)
  1. TYSABRI [Suspect]
     Indication: MULTIPLE SCLEROSIS
     Route: 042
     Dates: start: 20130130

REACTIONS (5)
  - Feeling cold [Recovered/Resolved]
  - Visual impairment [Not Recovered/Not Resolved]
  - Arthropod bite [Not Recovered/Not Resolved]
  - Off label use [Unknown]
  - Dyspnoea [Recovered/Resolved]
